FAERS Safety Report 14996817 (Version 1)
Quarter: 2018Q2

REPORT INFORMATION
  Report Type: Spontaneous
  Country: US (occurrence: US)
  Receive Date: 20180611
  Receipt Date: 20180611
  Transmission Date: 20180711
  Serious: Yes (Other)
  Sender: FDA-Public Use
  Company Number: US-TEVA-2018-US-902550

PATIENT
  Sex: Male

DRUGS (2)
  1. ADDERALL [Suspect]
     Active Substance: AMPHETAMINE ASPARTATE\AMPHETAMINE SULFATE\DEXTROAMPHETAMINE SACCHARATE\DEXTROAMPHETAMINE SULFATE
     Route: 065
  2. DYANAVEL XR [Suspect]
     Active Substance: AMPHETAMINE
     Route: 065

REACTIONS (3)
  - Suicidal ideation [Unknown]
  - Withdrawal syndrome [Unknown]
  - Hypersomnia [Unknown]
